FAERS Safety Report 23743442 (Version 1)
Quarter: 2024Q2

REPORT INFORMATION
  Report Type: Spontaneous
  Country: CA (occurrence: CA)
  Receive Date: 20240415
  Receipt Date: 20240415
  Transmission Date: 20240716
  Serious: Yes (Death, Other)
  Sender: FDA-Public Use
  Company Number: CA-PFIZER INC-PV202300145898

PATIENT
  Age: 60 Year
  Sex: Female
  Weight: 59.6 kg

DRUGS (9)
  1. TRAZIMERA [Suspect]
     Active Substance: TRASTUZUMAB-QYYP
     Dosage: 476.8 MG, INITIAL DOSE
     Route: 042
     Dates: start: 20230907
  2. TRAZIMERA [Suspect]
     Active Substance: TRASTUZUMAB-QYYP
     Dosage: 357.6 MG, EVERY 3 WEEKS
     Route: 042
     Dates: start: 20230928
  3. TRAZIMERA [Suspect]
     Active Substance: TRASTUZUMAB-QYYP
     Dosage: 357.6 MG, EVERY 3 WEEKS
     Route: 042
     Dates: start: 20231019
  4. TRAZIMERA [Suspect]
     Active Substance: TRASTUZUMAB-QYYP
     Dosage: 357.6 MG, EVERY 3 WEEKS
     Route: 042
     Dates: start: 20231109
  5. TRAZIMERA [Suspect]
     Active Substance: TRASTUZUMAB-QYYP
     Dosage: 357.6 MG
     Route: 042
     Dates: start: 20231221
  6. TRAZIMERA [Suspect]
     Active Substance: TRASTUZUMAB-QYYP
     Dosage: 357.6 MG
     Route: 042
     Dates: start: 20240111
  7. TRAZIMERA [Suspect]
     Active Substance: TRASTUZUMAB-QYYP
     Dosage: 357.6 MG
     Route: 042
     Dates: start: 20240201
  8. TRAZIMERA [Suspect]
     Active Substance: TRASTUZUMAB-QYYP
     Dosage: 357.6 MG
     Route: 042
     Dates: start: 20240222
  9. TRAZIMERA [Suspect]
     Active Substance: TRASTUZUMAB-QYYP
     Dosage: 357.6 MG
     Route: 042
     Dates: start: 20240314

REACTIONS (18)
  - Death [Fatal]
  - Neuropathy peripheral [Not Recovered/Not Resolved]
  - Blood pressure diastolic decreased [Recovered/Resolved]
  - Malaise [Recovered/Resolved]
  - Chills [Recovered/Resolved]
  - Fatigue [Not Recovered/Not Resolved]
  - Diarrhoea [Not Recovered/Not Resolved]
  - Palmar-plantar erythrodysaesthesia syndrome [Not Recovered/Not Resolved]
  - Dry skin [Unknown]
  - Pruritus [Unknown]
  - Abdominal distension [Unknown]
  - Erythema [Unknown]
  - Dyspepsia [Unknown]
  - Abdominal discomfort [Not Recovered/Not Resolved]
  - Nausea [Not Recovered/Not Resolved]
  - Cough [Unknown]
  - Nasopharyngitis [Unknown]
  - Dehydration [Unknown]

NARRATIVE: CASE EVENT DATE: 20230907
